FAERS Safety Report 6661380-X (Version None)
Quarter: 2010Q1

REPORT INFORMATION
  Report Type: 
  Country: None (occurrence: None)
  Receive Date: 20100331
  Receipt Date: 20100324
  Transmission Date: 20100710
  Serious: Yes (Death)
  Sender: FDA-Public Use
  Company Number: PHHY2010MY17788

PATIENT
  Age: 40 Year
  Sex: Male

DRUGS (1)
  1. GLEEVEC [Suspect]

REACTIONS (3)
  - ACUTE LEUKAEMIA [None]
  - MALIGNANT NEOPLASM PROGRESSION [None]
  - NEUTROPENIC SEPSIS [None]
